FAERS Safety Report 12852788 (Version 1)
Quarter: 2016Q4

REPORT INFORMATION
  Report Type: Spontaneous
  Country: DE (occurrence: DE)
  Receive Date: 20161017
  Receipt Date: 20161017
  Transmission Date: 20170207
  Serious: Yes (Congenital Anomaly, Other)
  Sender: FDA-Public Use
  Company Number: DE-ACCORD-044889

PATIENT
  Age: 6 Week
  Sex: Female
  Weight: 3.48 kg

DRUGS (2)
  1. FEMIBION [Concomitant]
     Active Substance: VITAMINS
     Indication: PROPHYLAXIS OF NEURAL TUBE DEFECT
     Route: 064
     Dates: start: 20150530, end: 20160306
  2. QUETIAPINE. [Suspect]
     Active Substance: QUETIAPINE
     Indication: PERSONALITY DISORDER
     Dosage: 600 MG/D THROUGHOUT PREGNANCY?100 MG/D TWICE BETWEEN GW 25 AND 25 3/7
     Route: 064
     Dates: start: 20150530, end: 20160306

REACTIONS (3)
  - Hypoacusis [Not Recovered/Not Resolved]
  - Failure to thrive [Not Recovered/Not Resolved]
  - Foetal exposure during pregnancy [Unknown]
